FAERS Safety Report 13058693 (Version 8)
Quarter: 2017Q2

REPORT INFORMATION
  Report Type: Spontaneous
  Country: US (occurrence: US)
  Receive Date: 20161223
  Receipt Date: 20170613
  Transmission Date: 20170830
  Serious: Yes (Hospitalization, Other)
  Sender: FDA-Public Use
  Company Number: US-PFIZER INC-2016580627

PATIENT
  Age: 46 Year
  Sex: Female
  Weight: 107 kg

DRUGS (7)
  1. SUTENT [Suspect]
     Active Substance: SUNITINIB MALATE
     Dosage: 25 MG, UNK
  2. SUTENT [Suspect]
     Active Substance: SUNITINIB MALATE
     Indication: NEUROENDOCRINE CARCINOMA METASTATIC
     Dosage: 37.5 MG, CYCLIC
     Route: 048
     Dates: start: 20161205
  3. SUTENT [Suspect]
     Active Substance: SUNITINIB MALATE
     Dosage: 37.5 MG, 1X/DAY
     Route: 048
     Dates: start: 20161205
  4. SANDOSTATIN [Concomitant]
     Active Substance: OCTREOTIDE ACETATE
     Dosage: UNK
  5. FLUCONAZOLE. [Concomitant]
     Active Substance: FLUCONAZOLE
     Dosage: UNK
  6. SUTENT [Suspect]
     Active Substance: SUNITINIB MALATE
     Dosage: 37.5 MG, CYCLIC
     Route: 048
  7. SUTENT [Suspect]
     Active Substance: SUNITINIB MALATE
     Dosage: 37.5 MG, CYCLIC
     Route: 048

REACTIONS (19)
  - Vomiting [Unknown]
  - Infusion site extravasation [Unknown]
  - Infusion site pain [Unknown]
  - Dry skin [Unknown]
  - Dehydration [Unknown]
  - Insomnia [Not Recovered/Not Resolved]
  - Diarrhoea [Unknown]
  - Wound haemorrhage [Unknown]
  - Stomatitis [Unknown]
  - Back pain [Unknown]
  - Infusion site swelling [Unknown]
  - Abdominal pain [Unknown]
  - Hot flush [Unknown]
  - Fungal infection [Unknown]
  - Neoplasm progression [Unknown]
  - Nausea [Unknown]
  - Amenorrhoea [Unknown]
  - Drug dose omission [Unknown]
  - Rash [Unknown]

NARRATIVE: CASE EVENT DATE: 201612
